FAERS Safety Report 4962367-5 (Version None)
Quarter: 2006Q1

REPORT INFORMATION
  Report Type: 
  Country: None (occurrence: None)
  Receive Date: 20060329
  Receipt Date: 20060320
  Transmission Date: 20060701
  Serious: Yes (Other)
  Sender: FDA-Public Use
  Company Number: 2006038902

PATIENT
  Age: 68 Year
  Sex: Male

DRUGS (9)
  1. XANAX [Suspect]
     Indication: AGITATION
     Dosage: 0.25 MG, AS NEEDED
  2. XANAX [Suspect]
     Indication: ANXIETY
     Dosage: 0.25 MG, AS NEEDED
  3. XANAX [Suspect]
     Indication: DEPRESSION
     Dosage: 0.25 MG, AS NEEDED
  4. DIGOXIN [Concomitant]
  5. TOPROL-XL [Concomitant]
  6. GLIPIZIDE [Concomitant]
  7. VERAPAMIL [Concomitant]
  8. PLAVIX [Concomitant]
  9. ALL OTHER THERAPEUTIC PRODUCTS [Concomitant]

REACTIONS (4)
  - ARTHRITIS [None]
  - ARTHROPATHY [None]
  - CHOLELITHIASIS [None]
  - PROSTATE EXAMINATION ABNORMAL [None]
